FAERS Safety Report 22273275 (Version 1)
Quarter: 2023Q2

REPORT INFORMATION
  Report Type: Spontaneous
  Country: TW (occurrence: TW)
  Receive Date: 20230502
  Receipt Date: 20230502
  Transmission Date: 20230721
  Serious: Yes (Other)
  Sender: FDA-Public Use
  Company Number: TW-SUN PHARMACEUTICAL INDUSTRIES LTD-2023R1-385475

PATIENT
  Age: 72 Year
  Sex: Male

DRUGS (2)
  1. DESMOPRESSIN [Suspect]
     Active Substance: DESMOPRESSIN
     Indication: Benign prostatic hyperplasia
     Dosage: 0.1 MILLIGRAM, QD
     Route: 065
  2. SOLIFENACIN [Concomitant]
     Active Substance: SOLIFENACIN
     Indication: Benign prostatic hyperplasia
     Dosage: UNK, QD
     Route: 065

REACTIONS (3)
  - Water intoxication [Unknown]
  - Seizure [Unknown]
  - Hyponatraemia [Unknown]
